FAERS Safety Report 9540040 (Version 1)
Quarter: 2013Q2

REPORT INFORMATION
  Report Type: Spontaneous
  Country: US (occurrence: None)
  Receive Date: 20130524
  Receipt Date: 20130524
  Transmission Date: 20140414
  Serious: Yes (Other)
  Sender: FDA-Public Use
  Company Number: PHEH2013US003046

PATIENT
  Age: 52 Year
  Sex: Female

DRUGS (3)
  1. GILENYA (FINGOLIMOD) CAPSULES, 0.5MG [Suspect]
     Route: 048
     Dates: start: 201207
  2. AMIODARONE (AMIODARONE) [Concomitant]
  3. OPANA (OXYMORPHONE HYDROCHLORIDE) [Concomitant]

REACTIONS (4)
  - Multiple sclerosis relapse [None]
  - Muscular weakness [None]
  - Fall [None]
  - Pain [None]
